FAERS Safety Report 4565242-3 (Version None)
Quarter: 2005Q1

REPORT INFORMATION
  Report Type: 
  Country: None (occurrence: None)
  Receive Date: 20050127
  Receipt Date: 20050127
  Transmission Date: 20050727
  Serious: No
  Sender: FDA-Public Use
  Company Number: None

PATIENT
  Sex: Female
  Weight: 56.6996 kg

DRUGS (5)
  1. GABAPENTIN [Suspect]
     Indication: NECK PAIN
     Dosage: 1 CAPSULE PO THREE TIMES A DAY
     Route: 048
     Dates: start: 20041115, end: 20041130
  2. GABAPENTIN [Suspect]
     Indication: NEUROPATHY
     Dosage: 1 CAPSULE PO THREE TIMES A DAY
     Route: 048
     Dates: start: 20041115, end: 20041130
  3. RANITIDINE [Concomitant]
  4. PREMARIN [Concomitant]
  5. SYNTHROID [Concomitant]

REACTIONS (4)
  - ABDOMINAL PAIN UPPER [None]
  - DRUG INEFFECTIVE [None]
  - NECK PAIN [None]
  - PHARMACEUTICAL PRODUCT COMPLAINT [None]
